FAERS Safety Report 5264239-8 (Version None)
Quarter: 2007Q1

REPORT INFORMATION
  Report Type: 
  Country: None (occurrence: None)
  Receive Date: 20070313
  Receipt Date: 20070301
  Transmission Date: 20070707
  Serious: Yes (Disabling)
  Sender: FDA-Public Use
  Company Number: CH-SANOFI-SYNTHELABO-A01200702222

PATIENT
  Age: 42 Year
  Sex: Male
  Weight: 60 kg

DRUGS (11)
  1. SELIPRAN [Concomitant]
     Indication: DRUG USE FOR UNKNOWN INDICATION
     Route: 048
  2. METOPROLOL SUCCINATE [Interacting]
     Indication: DRUG USE FOR UNKNOWN INDICATION
     Route: 048
  3. LISITRIL 5 [Interacting]
     Indication: DRUG USE FOR UNKNOWN INDICATION
     Route: 048
     Dates: start: 20060301, end: 20061213
  4. ROHYPNOL [Interacting]
     Indication: DRUG USE FOR UNKNOWN INDICATION
     Route: 048
  5. DORMICUM [Interacting]
     Indication: DRUG USE FOR UNKNOWN INDICATION
     Route: 048
  6. SUBUTEX [Interacting]
     Indication: POLYSUBSTANCE DEPENDENCE
     Route: 048
  7. PRAZINE [Interacting]
     Indication: DRUG USE FOR UNKNOWN INDICATION
     Route: 048
  8. LORAZEPAM [Interacting]
     Indication: DRUG USE FOR UNKNOWN INDICATION
     Route: 048
  9. PLAVIX [Suspect]
     Indication: DRUG USE FOR UNKNOWN INDICATION
     Route: 048
  10. KEPPRA [Interacting]
     Indication: EPILEPSY
     Route: 048
     Dates: start: 20061123, end: 20061207
  11. KEPPRA [Interacting]
     Route: 048
     Dates: start: 20061208, end: 20061229

REACTIONS (3)
  - DELUSION [None]
  - DRUG INTERACTION [None]
  - PARANOIA [None]
